FAERS Safety Report 23092992 (Version 4)
Quarter: 2023Q4

REPORT INFORMATION
  Report Type: Spontaneous
  Country: GB (occurrence: GB)
  Receive Date: 20231021
  Receipt Date: 20231122
  Transmission Date: 20240110
  Serious: Yes (Hospitalization, Other)
  Sender: FDA-Public Use
  Company Number: GB-JNJFOC-20231009522

PATIENT
  Age: 80 Year
  Sex: Male
  Weight: 71.6 kg

DRUGS (6)
  1. PREDNISOLONE [Suspect]
     Active Substance: PREDNISOLONE
     Indication: Hormone-dependent prostate cancer
     Dosage: 5 MILLIGRAM DAILY;
     Route: 048
     Dates: start: 20230615, end: 20230909
  2. PREDNISOLONE [Suspect]
     Active Substance: PREDNISOLONE
     Dosage: 5 MILLIGRAM DAILY; 5 MG, QD
     Route: 048
     Dates: start: 20230615
  3. ABIRATERONE ACETATE [Suspect]
     Active Substance: ABIRATERONE ACETATE
     Indication: Hormone-dependent prostate cancer
     Dosage: 1000 MILLIGRAM DAILY;
     Route: 048
     Dates: start: 20230615, end: 20230916
  4. ABIRATERONE ACETATE [Suspect]
     Active Substance: ABIRATERONE ACETATE
     Dosage: 1000 MILLIGRAM DAILY; 1000 MG, QD, DURATION: 86 DAYS
     Route: 048
     Dates: start: 20230615, end: 20230909
  5. ABEMACICLIB [Suspect]
     Active Substance: ABEMACICLIB
     Indication: Hormone-dependent prostate cancer
     Dosage: UNK,
     Route: 065
     Dates: start: 20230615, end: 20230916
  6. ABEMACICLIB [Suspect]
     Active Substance: ABEMACICLIB
     Indication: Hormone-dependent prostate cancer
     Dosage: UNK,
     Route: 065
     Dates: start: 20230615, end: 20230909

REACTIONS (5)
  - Fatigue [Recovered/Resolved]
  - Oral candidiasis [Recovered/Resolved]
  - Dyspnoea [Recovered/Resolved]
  - Sepsis [Unknown]
  - Decreased appetite [Unknown]

NARRATIVE: CASE EVENT DATE: 20230701
